FAERS Safety Report 4485616-9 (Version None)
Quarter: 2004Q4

REPORT INFORMATION
  Report Type: 
  Country: None (occurrence: None)
  Receive Date: 20041026
  Receipt Date: 20041020
  Transmission Date: 20050328
  Serious: Yes (Death)
  Sender: FDA-Public Use
  Company Number: BR-MERCK-0410BRA00407

PATIENT
  Age: 92 Year
  Sex: Male

DRUGS (6)
  1. VIOXX [Suspect]
     Indication: PAIN
     Route: 048
     Dates: start: 20030101
  2. MINERALS (UNSPECIFIED) AND VITAMINS (UNSPECIFIED) [Concomitant]
     Route: 048
  3. BROMOPRIDE [Concomitant]
     Indication: GASTROINTESTINAL DISORDER
     Route: 048
  4. VASOTEC [Concomitant]
     Indication: HYPERTENSION
     Route: 048
  5. AMIODARONE HYDROCHLORIDE [Concomitant]
     Indication: CARDIOVASCULAR DISORDER
     Route: 048
  6. IRON (UNSPECIFIED) AND VITAMINS (UNSPECIFIED) [Concomitant]
     Indication: ANAEMIA
     Route: 048

REACTIONS (1)
  - CARDIAC ARREST [None]
